FAERS Safety Report 8542377-1 (Version None)
Quarter: 2012Q3

REPORT INFORMATION
  Report Type: 
  Country: None (occurrence: None)
  Receive Date: 20120726
  Receipt Date: 20111208
  Transmission Date: 20120928
  Serious: Yes (Hospitalization, Other)
  Sender: FDA-Public Use
  Company Number: US-ASTRAZENECA-2011SE57358

PATIENT
  Age: 64 Year
  Sex: Female
  Weight: 45.4 kg

DRUGS (7)
  1. ASPIRIN [Concomitant]
     Dosage: 1 TAB DAILY IN AM
  2. ATIVAN [Concomitant]
     Indication: ANXIETY
     Dosage: AS NEEDED UP TO TWICE DAILY
  3. ATIVAN [Concomitant]
     Dosage: 9 AM AND 9 PM
  4. CENTRUM [Concomitant]
     Dosage: 1 TABLET DAILY IN AM
  5. SEROQUEL [Suspect]
     Route: 048
     Dates: start: 20110404
  6. MAGNESIUM OXIDE [Concomitant]
     Route: 048
  7. THIAMINE [Concomitant]
     Route: 030

REACTIONS (8)
  - ANXIETY [None]
  - SOMNOLENCE [None]
  - CARDIAC DISORDER [None]
  - POST-TRAUMATIC STRESS DISORDER [None]
  - ATRIAL FIBRILLATION [None]
  - STRESS [None]
  - PALPITATIONS [None]
  - OBSESSIVE-COMPULSIVE DISORDER [None]
